FAERS Safety Report 18855814 (Version 1)
Quarter: 2021Q1

REPORT INFORMATION
  Report Type: Spontaneous
  Country: US (occurrence: US)
  Receive Date: 20210205
  Receipt Date: 20210205
  Transmission Date: 20210420
  Serious: No
  Sender: FDA-Public Use
  Company Number: US-BAXTER-2021BAX002239

PATIENT
  Age: 64 Year
  Sex: Male

DRUGS (9)
  1. ELIQUIS [Suspect]
     Active Substance: APIXABAN
     Indication: ANTICOAGULANT THERAPY
     Route: 065
     Dates: start: 20191225
  2. ASPIRIN. [Suspect]
     Active Substance: ASPIRIN
     Indication: ANTICOAGULANT THERAPY
     Route: 065
     Dates: start: 20191225
  3. METOPROLOL TARTRATE INJECTION, USP [Suspect]
     Active Substance: METOPROLOL TARTRATE
     Indication: HYPERTENSION
     Route: 042
     Dates: start: 20191225
  4. AMIODARONE HYDROCHLORIDE. [Suspect]
     Active Substance: AMIODARONE HYDROCHLORIDE
     Indication: POST PROCEDURAL COMPLICATION
  5. ASPIRIN. [Suspect]
     Active Substance: ASPIRIN
     Indication: ARRHYTHMIA
  6. FUROSEMIDE INJECTION USP [Suspect]
     Active Substance: FUROSEMIDE
     Indication: POSTOPERATIVE CARE
     Route: 065
     Dates: start: 20191225
  7. AMIODARONE HYDROCHLORIDE. [Suspect]
     Active Substance: AMIODARONE HYDROCHLORIDE
     Indication: VENTRICULAR ARRHYTHMIA
     Dosage: DOSAGE FORM: TABLET
     Route: 048
     Dates: start: 20191225, end: 20200113
  8. FUROSEMIDE INJECTION USP [Suspect]
     Active Substance: FUROSEMIDE
     Indication: DIURETIC THERAPY
  9. POTASSIUM [Suspect]
     Active Substance: POTASSIUM
     Indication: PRODUCT USED FOR UNKNOWN INDICATION
     Route: 065
     Dates: start: 20191225

REACTIONS (2)
  - Tachycardia [Not Recovered/Not Resolved]
  - Adverse reaction [Unknown]

NARRATIVE: CASE EVENT DATE: 20200126
